FAERS Safety Report 7933868-2 (Version None)
Quarter: 2011Q4

REPORT INFORMATION
  Report Type: 
  Country: None (occurrence: None)
  Receive Date: 20111122
  Receipt Date: 20111117
  Transmission Date: 20120403
  Serious: Yes (Other)
  Sender: FDA-Public Use
  Company Number: PHHY2011NL80642

PATIENT
  Sex: Female
  Weight: 58 kg

DRUGS (8)
  1. ARTHROTEC [Concomitant]
  2. ZOMETA [Suspect]
     Indication: BREAST CANCER METASTATIC
     Dosage: 4 MG/5 ML, FOUR WEEKS
     Route: 042
     Dates: start: 20110401
  3. ZOMETA [Suspect]
     Dosage: 4 MG/5 ML, FOUR WEEKS
     Route: 042
     Dates: start: 20110812
  4. CHEMOTHERAPEUTICS [Concomitant]
  5. PACLITAXEL [Concomitant]
     Dosage: UNK UKN, UNK
  6. ACETAMINOPHEN [Concomitant]
  7. ZOMETA [Suspect]
     Dosage: 4 MG/5 ML, FOUR WEEKS
     Route: 042
     Dates: start: 20110520
  8. ZOMETA [Suspect]
     Dosage: 4 MG/5 ML, FOUR WEEKS
     Route: 042
     Dates: start: 20110909

REACTIONS (4)
  - METASTASES TO BONE [None]
  - ABSCESS JAW [None]
  - SWELLING [None]
  - PAIN [None]
